FAERS Safety Report 6424701-9 (Version None)
Quarter: 2009Q4

REPORT INFORMATION
  Report Type: 
  Country: None (occurrence: None)
  Receive Date: 20091102
  Receipt Date: 20091102
  Transmission Date: 20100525
  Serious: No
  Sender: FDA-Public Use
  Company Number: None

PATIENT
  Age: 62 Year

DRUGS (1)
  1. AZITHROMYCIN [Suspect]
     Dosage: 300 MG EVERYDAY PO
     Route: 048
     Dates: start: 20090424, end: 20090425

REACTIONS (2)
  - ANGIOEDEMA [None]
  - RASH [None]
